FAERS Safety Report 21547622 (Version 1)
Quarter: 2022Q4

REPORT INFORMATION
  Report Type: Spontaneous
  Country: JP (occurrence: JP)
  Receive Date: 20221103
  Receipt Date: 20221103
  Transmission Date: 20230112
  Serious: Yes (Other)
  Sender: FDA-Public Use
  Company Number: JP-BAYER-2022A149301

PATIENT
  Age: 5 Decade
  Sex: Female
  Weight: 49.5 kg

DRUGS (1)
  1. YAZ [Suspect]
     Active Substance: DROSPIRENONE\ETHINYL ESTRADIOL
     Indication: Dysmenorrhoea

REACTIONS (1)
  - Non-alcoholic steatohepatitis [Recovering/Resolving]
